FAERS Safety Report 19215888 (Version 6)
Quarter: 2022Q1

REPORT INFORMATION
  Report Type: Spontaneous
  Country: US (occurrence: US)
  Receive Date: 20210505
  Receipt Date: 20220209
  Transmission Date: 20220423
  Serious: Yes (Hospitalization, Other)
  Sender: FDA-Public Use
  Company Number: US-GLOBAL BLOOD THERAPEUTICS INC-US-GBT-21-01046

PATIENT
  Age: 37 Year
  Sex: Male

DRUGS (16)
  1. OXBRYTA [Suspect]
     Active Substance: VOXELOTOR
     Indication: Sickle cell disease
     Route: 048
     Dates: start: 20200630, end: 20210205
  2. OXBRYTA [Suspect]
     Active Substance: VOXELOTOR
     Route: 048
     Dates: start: 202104
  3. IBUPROFEN [Concomitant]
     Active Substance: IBUPROFEN
     Indication: Pain
  4. CAPSAICIN [Concomitant]
     Active Substance: CAPSAICIN
     Indication: Product used for unknown indication
     Dosage: AS NEEDED
  5. LIDODERM [Concomitant]
     Active Substance: LIDOCAINE
     Indication: Product used for unknown indication
     Dosage: NOT PROVIDED
  6. METHADONE [Concomitant]
     Active Substance: METHADONE HYDROCHLORIDE
     Indication: Sickle cell disease
     Route: 048
     Dates: start: 20210218, end: 20210719
  7. METHADONE [Concomitant]
     Active Substance: METHADONE HYDROCHLORIDE
  8. VITAMINS [Concomitant]
     Active Substance: VITAMINS
     Indication: Product used for unknown indication
     Route: 048
  9. OXYCODONE [Concomitant]
     Active Substance: OXYCODONE
     Indication: Pain
     Route: 048
     Dates: start: 20210215, end: 20210415
  10. OXYCODONE [Concomitant]
     Active Substance: OXYCODONE
     Indication: Sickle cell disease
     Route: 048
     Dates: start: 20210423, end: 20210701
  11. PANTOPRAZOLE [Concomitant]
     Active Substance: PANTOPRAZOLE
     Indication: Product used for unknown indication
     Route: 048
  12. SENNA [Concomitant]
     Active Substance: SENNA LEAF\SENNOSIDES\SENNOSIDES A AND B
     Indication: Constipation
     Route: 048
  13. ZINC GLUCONATE [Concomitant]
     Active Substance: ZINC GLUCONATE
     Indication: Product used for unknown indication
     Route: 048
  14. FOLIC ACID [Concomitant]
     Active Substance: FOLIC ACID
     Indication: Sickle cell disease
     Route: 048
     Dates: start: 20190613, end: 20210811
  15. VITAMIN D3 [Concomitant]
     Active Substance: CHOLECALCIFEROL
     Indication: Sickle cell disease
     Route: 048
     Dates: start: 20210112, end: 20210709
  16. METRONIDAZOLE [Concomitant]
     Active Substance: METRONIDAZOLE
     Indication: Helicobacter infection
     Route: 048
     Dates: start: 20210427, end: 20210511

REACTIONS (2)
  - Sickle cell anaemia with crisis [Recovered/Resolved]
  - Peptic ulcer [Recovered/Resolved]

NARRATIVE: CASE EVENT DATE: 20210413
